FAERS Safety Report 5774745-5 (Version None)
Quarter: 2008Q2

REPORT INFORMATION
  Report Type: 
  Country: None (occurrence: None)
  Receive Date: 20080617
  Receipt Date: 20080605
  Transmission Date: 20081010
  Serious: Yes (Hospitalization)
  Sender: FDA-Public Use
  Company Number: FR-JNJFOC-20080601499

PATIENT
  Sex: Female

DRUGS (10)
  1. OFLOCET [Suspect]
     Indication: URINARY TRACT INFECTION
     Route: 065
  2. PREVISCAN [Interacting]
     Indication: AORTIC VALVE INCOMPETENCE
     Route: 048
  3. AMLOR [Concomitant]
  4. IRBESARTAN [Concomitant]
  5. ALDACTAZINE [Concomitant]
  6. BUFLOMEDIL [Concomitant]
  7. EFFEXOR [Concomitant]
  8. FUMAFER [Concomitant]
  9. FOLIC ACID [Concomitant]
  10. DAFALGAN [Concomitant]

REACTIONS (3)
  - DRUG INTERACTION [None]
  - INTERNATIONAL NORMALISED RATIO INCREASED [None]
  - SHOCK HAEMORRHAGIC [None]
